FAERS Safety Report 9102879 (Version 3)
Quarter: 2013Q4

REPORT INFORMATION
  Report Type: Report from Study
  Country: CA (occurrence: CA)
  Receive Date: 20130218
  Receipt Date: 20131203
  Transmission Date: 20140711
  Serious: Yes (Hospitalization, Other)
  Sender: FDA-Public Use
  Company Number: CA-JNJFOC-20130202870

PATIENT
  Age: 56 Year
  Sex: Female
  Weight: 75 kg

DRUGS (7)
  1. REMICADE [Suspect]
     Indication: HIDRADENITIS
     Route: 042
     Dates: start: 20131127
  2. REMICADE [Suspect]
     Indication: HIDRADENITIS
     Route: 042
     Dates: start: 20120202
  3. REMICADE [Suspect]
     Indication: HIDRADENITIS
     Route: 042
     Dates: start: 20120315, end: 20121121
  4. REMICADE [Suspect]
     Indication: HIDRADENITIS
     Route: 042
     Dates: start: 2013
  5. METHOTREXATE [Concomitant]
     Route: 065
  6. CRESTOR [Concomitant]
     Route: 065
  7. SORIATANE [Concomitant]
     Route: 065

REACTIONS (8)
  - Hidradenitis [Recovering/Resolving]
  - Surgery [Unknown]
  - Flushing [Recovering/Resolving]
  - Palpitations [Recovered/Resolved]
  - Off label use [Unknown]
  - Pyrexia [Recovered/Resolved]
  - Malaise [Recovering/Resolving]
  - Infusion related reaction [Recovering/Resolving]
